FAERS Safety Report 7363109-9 (Version None)
Quarter: 2011Q1

REPORT INFORMATION
  Report Type: 
  Country: None (occurrence: None)
  Receive Date: 20110321
  Receipt Date: 20100907
  Transmission Date: 20110831
  Serious: Yes (Hospitalization, Disabling, Other)
  Sender: FDA-Public Use
  Company Number: US-BAYER-201013054NA

PATIENT
  Sex: Female
  Weight: 90.703 kg

DRUGS (13)
  1. ALBUTEROL [Concomitant]
     Dosage: UNK
     Dates: start: 20060101
  2. NSAID'S [Concomitant]
     Dosage: UNK UNK, PRN
     Dates: start: 20010101
  3. GABAPENTIN [Concomitant]
     Indication: PAIN
     Dosage: UNK
     Dates: start: 20060101
  4. PROCHLORPERAZINE [Concomitant]
  5. GABAPENTIN [Concomitant]
     Indication: HEADACHE
  6. HYDROCODONE [HYDROCODONE] [Concomitant]
     Indication: PAIN
     Dosage: 7.5 MG, UNK
     Dates: start: 20060101
  7. AMOXICILLIN [Concomitant]
     Dosage: 500 MG, UNK
     Dates: start: 20061028, end: 20061104
  8. TRAMADOL HCL [Concomitant]
     Indication: PAIN
  9. DICYCLOMINE [Concomitant]
     Dosage: 20 MG, UNK
  10. COMPAZINE [Concomitant]
     Dosage: UNK UNK, PRN
  11. YAZ [Suspect]
     Indication: CONTRACEPTION
     Dosage: UNK
     Route: 048
     Dates: start: 20061009, end: 20061104
  12. HYDROCODONE [HYDROCODONE] [Concomitant]
     Indication: HEADACHE
  13. TRAMADOL HCL [Concomitant]
     Indication: HEADACHE

REACTIONS (8)
  - CONVULSION [None]
  - CONFUSIONAL STATE [None]
  - CEREBROVASCULAR ACCIDENT [None]
  - AMNESIA [None]
  - INTRACRANIAL VENOUS SINUS THROMBOSIS [None]
  - LETHARGY [None]
  - MIGRAINE [None]
  - APHASIA [None]
